FAERS Safety Report 8432872-8 (Version None)
Quarter: 2012Q2

REPORT INFORMATION
  Report Type: 
  Country: None (occurrence: None)
  Receive Date: 20120613
  Receipt Date: 20120531
  Transmission Date: 20120825
  Serious: Yes (Other)
  Sender: FDA-Public Use
  Company Number: BR-AMGEN-BRASP2012035241

PATIENT
  Age: 37 Year
  Sex: Male
  Weight: 84.8 kg

DRUGS (4)
  1. FOLIC ACID [Concomitant]
     Dosage: THREE TIMES A WEEK
  2. ENBREL [Suspect]
     Indication: PSORIATIC ARTHROPATHY
     Dosage: 50 MG, WEEKLY
     Route: 058
     Dates: start: 20120201
  3. PROPRANOLOL [Concomitant]
     Indication: TREMOR
     Dosage: UNK
  4. METHOTREXATE [Concomitant]
     Dosage: 8 TABLETS ONCE WEEKLY

REACTIONS (2)
  - IMMUNOSUPPRESSION [None]
  - INFLUENZA [None]
